FAERS Safety Report 26067428 (Version 2)
Quarter: 2025Q4

REPORT INFORMATION
  Report Type: Spontaneous
  Country: JP (occurrence: JP)
  Receive Date: 20251120
  Receipt Date: 20251121
  Transmission Date: 20260117
  Serious: Yes (Hospitalization, Other)
  Sender: ALEXION PHARMACEUTICALS
  Company Number: JP-AstraZeneca-CH-00993280A

PATIENT
  Age: 5 Decade
  Sex: Female
  Weight: 73.4 kg

DRUGS (6)
  1. BENRALIZUMAB [Suspect]
     Active Substance: BENRALIZUMAB
     Indication: Eosinophilic granulomatosis with polyangiitis
     Dosage: 30 MILLIGRAM, Q4W
  2. BENRALIZUMAB [Suspect]
     Active Substance: BENRALIZUMAB
  3. SYMBICORT [Concomitant]
     Active Substance: BUDESONIDE\FORMOTEROL FUMARATE DIHYDRATE
     Dosage: 2 TIMES A DAY 1 TIME 4 INHALATIONS
     Route: 065
  4. MONTELUKAST [Concomitant]
     Active Substance: MONTELUKAST
     Route: 065
  5. THEOPHYLLINE [Concomitant]
     Active Substance: THEOPHYLLINE
     Route: 065
  6. ESOMEPRAZOLE [Concomitant]
     Active Substance: ESOMEPRAZOLE
     Route: 065

REACTIONS (17)
  - Oropharyngeal discomfort [Recovered/Resolved]
  - Cough [Recovered/Resolved]
  - Eosinophilic granulomatosis with polyangiitis [Unknown]
  - Sinusitis [Unknown]
  - Amaurosis fugax [Unknown]
  - Nausea [Unknown]
  - Liver disorder [Unknown]
  - Asthma [Unknown]
  - Nasopharyngitis [Unknown]
  - Visual acuity reduced [Unknown]
  - Visual field defect [Unknown]
  - Mononeuropathy multiplex [Unknown]
  - Erythema annulare [Unknown]
  - Palpable purpura [Unknown]
  - Conduction disorder [Unknown]
  - Cutaneous vasculitis [Unknown]
  - Neuropathy peripheral [Unknown]
